FAERS Safety Report 5830363-1 (Version None)
Quarter: 2008Q3

REPORT INFORMATION
  Report Type: 
  Country: None (occurrence: None)
  Receive Date: 20080801
  Receipt Date: 20080723
  Transmission Date: 20090109
  Serious: Yes (Other)
  Sender: FDA-Public Use
  Company Number: BR-ROCHE-577747

PATIENT
  Sex: Male
  Weight: 96 kg

DRUGS (1)
  1. ROACUTAN [Suspect]
     Indication: ACNE
     Route: 048
     Dates: start: 20060101, end: 20070501

REACTIONS (4)
  - LIGAMENT OPERATION [None]
  - ROAD TRAFFIC ACCIDENT [None]
  - SPLENECTOMY [None]
  - WEIGHT DECREASED [None]
